FAERS Safety Report 17558029 (Version 1)
Quarter: 2020Q1

REPORT INFORMATION
  Report Type: Spontaneous
  Country: AT (occurrence: AT)
  Receive Date: 20200318
  Receipt Date: 20200318
  Transmission Date: 20200409
  Serious: Yes (Hospitalization)
  Sender: FDA-Public Use
  Company Number: NVSC2020AT074270

PATIENT
  Age: 69 Year
  Sex: Female

DRUGS (2)
  1. TERIPARATIDE [Concomitant]
     Active Substance: TERIPARATIDE
     Indication: PRODUCT USED FOR UNKNOWN INDICATION
     Route: 065
  2. ACLASTA [Suspect]
     Active Substance: ZOLEDRONIC ACID
     Indication: OSTEOPOROSIS
     Dosage: UNK UNK, ONCE/SINGLE
     Route: 065
     Dates: start: 201712, end: 201812

REACTIONS (7)
  - Osteochondroma [Unknown]
  - Wrist fracture [Unknown]
  - Influenza [Unknown]
  - Radius fracture [Unknown]
  - Decreased appetite [Unknown]
  - Weight decreased [Unknown]
  - Fall [Unknown]

NARRATIVE: CASE EVENT DATE: 2018
